FAERS Safety Report 4450194-7 (Version None)
Quarter: 2004Q3

REPORT INFORMATION
  Report Type: 
  Country: None (occurrence: None)
  Receive Date: 20040914
  Receipt Date: 20040831
  Transmission Date: 20050211
  Serious: Yes (Hospitalization)
  Sender: FDA-Public Use
  Company Number: 04P-062-0261391-00

PATIENT
  Age: 43 Year
  Sex: Female

DRUGS (11)
  1. HUMIRA [Suspect]
     Indication: RHEUMATOID ARTHRITIS
     Dosage: 40 MG, 1 IN 2 WK, SUBCUTANEOUS
     Route: 058
     Dates: start: 20031120, end: 20040201
  2. CLOMIPRAMINE HCL [Suspect]
     Indication: SUICIDE ATTEMPT
     Dosage: 250 MG, ONCE, PER ORAL
     Route: 048
     Dates: start: 20031223, end: 20031223
  3. ROFECOXIB [Suspect]
     Indication: PAIN
     Dosage: PER ORAL
     Route: 048
     Dates: start: 20031229, end: 20040101
  4. ROFECOXIB [Suspect]
     Indication: RHEUMATOID ARTHRITIS
     Dosage: PER ORAL
     Route: 048
     Dates: start: 20031229, end: 20040101
  5. METHOTREXATE SODIUM [Concomitant]
  6. SULFASALAZINE [Concomitant]
  7. HYDROXYCHLOROQUINE SULFATE [Concomitant]
  8. LEFLUNOMIDE [Concomitant]
  9. METHYLPREDNISOLONE [Concomitant]
  10. ETANERCEPT [Concomitant]
  11. CELECOXIB [Concomitant]

REACTIONS (4)
  - ASTHMA [None]
  - DRUG INEFFECTIVE [None]
  - POISONING [None]
  - SUICIDE ATTEMPT [None]
